FAERS Safety Report 4884415-3 (Version None)
Quarter: 2006Q1

REPORT INFORMATION
  Report Type: 
  Country: None (occurrence: None)
  Receive Date: 20060117
  Receipt Date: 20060106
  Transmission Date: 20060701
  Serious: Yes (Hospitalization, Other)
  Sender: FDA-Public Use
  Company Number: KII-2006-0020664

PATIENT
  Age: 22 Year
  Sex: Male

DRUGS (1)
  1. OXYCONTIN [Suspect]
     Indication: INTENTIONAL DRUG MISUSE
     Dosage: INHALATION
     Route: 055

REACTIONS (14)
  - ACUTE RESPIRATORY DISTRESS SYNDROME [None]
  - AGITATION [None]
  - ASPIRATION [None]
  - BODY TEMPERATURE INCREASED [None]
  - BRADYCARDIA [None]
  - COMA [None]
  - DIFFICULT TO WEAN FROM VENTILATOR [None]
  - DRUG ABUSER [None]
  - EPISTAXIS [None]
  - HEART RATE INCREASED [None]
  - INCORRECT ROUTE OF DRUG ADMINISTRATION [None]
  - PRODUCTIVE COUGH [None]
  - RHONCHI [None]
  - SOMNOLENCE [None]
